FAERS Safety Report 11897573 (Version 1)
Quarter: 2016Q1

REPORT INFORMATION
  Report Type: Spontaneous
  Country: US (occurrence: US)
  Receive Date: 20160108
  Receipt Date: 20160108
  Transmission Date: 20160526
  Serious: Yes (Other)
  Sender: FDA-Public Use
  Company Number: US-BEH-2015057401

PATIENT
  Sex: Female
  Weight: 28 kg

DRUGS (11)
  1. GAMMAGARD [Concomitant]
     Active Substance: HUMAN IMMUNOGLOBULIN G
  2. NORMAL SALINE [Concomitant]
     Active Substance: SODIUM CHLORIDE
  3. DIPHENHYDRAMINE. [Concomitant]
     Active Substance: DIPHENHYDRAMINE
  4. SODIUM CHLORIDE. [Concomitant]
     Active Substance: SODIUM CHLORIDE
  5. ACETAMINOPHEN. [Concomitant]
     Active Substance: ACETAMINOPHEN
  6. NAPROXEN. [Concomitant]
     Active Substance: NAPROXEN
  7. HIZENTRA [Suspect]
     Active Substance: HUMAN IMMUNOGLOBULIN G
     Indication: IMMUNODEFICIENCY
     Route: 058
     Dates: start: 20150901
  8. EPIPEN [Concomitant]
     Active Substance: EPINEPHRINE
  9. IBUPROFEN. [Concomitant]
     Active Substance: IBUPROFEN
  10. LIDOCAINE/PRILOCAINE [Concomitant]
  11. LMX [Concomitant]
     Active Substance: LIDOCAINE

REACTIONS (1)
  - Cellulitis [Unknown]
